FAERS Safety Report 25564621 (Version 1)
Quarter: 2025Q3

REPORT INFORMATION
  Report Type: Report from Study
  Country: US (occurrence: US)
  Receive Date: 20250716
  Receipt Date: 20250716
  Transmission Date: 20251020
  Serious: Yes (Other)
  Sender: MYLAN
  Company Number: US-MYLANLABS-2025M1058531

PATIENT
  Age: 61 Year
  Sex: Female

DRUGS (8)
  1. SERTRALINE [Interacting]
     Active Substance: SERTRALINE HYDROCHLORIDE
     Indication: Product used for unknown indication
     Dosage: 200 MILLIGRAM, QD
  2. SERTRALINE [Interacting]
     Active Substance: SERTRALINE HYDROCHLORIDE
     Dosage: 200 MILLIGRAM, QD
     Route: 065
  3. SERTRALINE [Interacting]
     Active Substance: SERTRALINE HYDROCHLORIDE
     Dosage: 200 MILLIGRAM, QD
     Route: 065
  4. SERTRALINE [Interacting]
     Active Substance: SERTRALINE HYDROCHLORIDE
     Dosage: 200 MILLIGRAM, QD
  5. TEDIZOLID [Interacting]
     Active Substance: TEDIZOLID
     Indication: Pneumonia
  6. TEDIZOLID [Interacting]
     Active Substance: TEDIZOLID
     Route: 065
  7. TEDIZOLID [Interacting]
     Active Substance: TEDIZOLID
     Route: 065
  8. TEDIZOLID [Interacting]
     Active Substance: TEDIZOLID

REACTIONS (2)
  - Serotonin syndrome [Unknown]
  - Drug interaction [Unknown]
